FAERS Safety Report 6083225-1 (Version None)
Quarter: 2009Q1

REPORT INFORMATION
  Report Type: 
  Country: None (occurrence: None)
  Receive Date: 20090219
  Receipt Date: 20090211
  Transmission Date: 20090719
  Serious: Yes (Other)
  Sender: FDA-Public Use
  Company Number: PT-JNJFOC-20090203051

PATIENT
  Age: 48 Year
  Sex: Female

DRUGS (2)
  1. DURAGESIC-100 [Suspect]
     Indication: NECK PAIN
     Dosage: HALF A PATCH
     Route: 062
     Dates: end: 20081111
  2. UNSPECIFIED MEDICATIONS [Concomitant]
     Route: 065

REACTIONS (7)
  - DYSPHONIA [None]
  - DYSPNOEA [None]
  - EYELID OEDEMA [None]
  - HYPERSENSITIVITY [None]
  - PRURITUS [None]
  - RASH GENERALISED [None]
  - WRONG TECHNIQUE IN DRUG USAGE PROCESS [None]
